FAERS Safety Report 23316343 (Version 1)
Quarter: 2023Q4

REPORT INFORMATION
  Report Type: Spontaneous
  Country: US (occurrence: None)
  Receive Date: 20231219
  Receipt Date: 20231219
  Transmission Date: 20240110
  Serious: No
  Sender: FDA-Public Use
  Company Number: US-ROCHE-3359608

PATIENT
  Age: 62 Year
  Sex: Male

DRUGS (13)
  1. HEMLIBRA [Suspect]
     Active Substance: EMICIZUMAB-KXWH
     Indication: Factor VIII deficiency
     Route: 058
  2. AMICAR [Concomitant]
     Active Substance: AMINOCAPROIC ACID
  3. TRANEXAMIC ACID [Concomitant]
     Active Substance: TRANEXAMIC ACID
  4. TYLENOL EXTRA STRENGTH [Concomitant]
     Active Substance: ACETAMINOPHEN
  5. TRAMADOL HCL ER [Concomitant]
  6. CELEBREX [Concomitant]
     Active Substance: CELECOXIB
  7. LISINOPRIL AND HYDROCHLOROTHIAZIDE [Concomitant]
     Active Substance: HYDROCHLOROTHIAZIDE\LISINOPRIL
  8. METFORMIN HYDROCHLORIDE [Concomitant]
     Active Substance: METFORMIN HYDROCHLORIDE
  9. DULOXETINE HYDROCHLORIDE [Concomitant]
     Active Substance: DULOXETINE HYDROCHLORIDE
  10. ALKA SELTZER (UNITED STATES) [Concomitant]
  11. CETIRIZINE HCL [Concomitant]
     Active Substance: CETIRIZINE HYDROCHLORIDE
  12. VOLTAREN [Concomitant]
     Active Substance: DICLOFENAC SODIUM
  13. ATORVASTATIN CALCIUM [Concomitant]
     Active Substance: ATORVASTATIN CALCIUM

REACTIONS (1)
  - Haemorrhage [Unknown]
